FAERS Safety Report 9068460 (Version 1)
Quarter: 2013Q1

REPORT INFORMATION
  Report Type: Spontaneous
  Country: US (occurrence: None)
  Receive Date: 20130212
  Receipt Date: 20130212
  Transmission Date: 20140127
  Serious: Yes (Hospitalization)
  Sender: FDA-Public Use
  Company Number: None

PATIENT
  Age: 28 Year
  Sex: Female
  Weight: 57.15 kg

DRUGS (1)
  1. MIRENA MIRENA MIRENA [Suspect]
     Indication: CONTRACEPTION
     Dates: start: 20110930, end: 20130128

REACTIONS (6)
  - Menstruation irregular [None]
  - Device dislocation [None]
  - Device dislocation [None]
  - Emotional disorder [None]
  - Stress [None]
  - Impaired work ability [None]
